FAERS Safety Report 10486083 (Version 1)
Quarter: 2014Q4

REPORT INFORMATION
  Report Type: Spontaneous
  Country: FR (occurrence: FR)
  Receive Date: 20141001
  Receipt Date: 20141001
  Transmission Date: 20150528
  Serious: Yes (Hospitalization)
  Sender: FDA-Public Use
  Company Number: FR-AUROBINDO-AUR-APL-2014-10429

PATIENT
  Age: 72 Year
  Sex: Female

DRUGS (8)
  1. INEXIUM                            /01479302/ [Concomitant]
     Active Substance: ESOMEPRAZOLE MAGNESIUM
     Indication: PRODUCT USED FOR UNKNOWN INDICATION
     Dosage: 200 MG, UNK
     Route: 065
  2. ZITHROMAX [Concomitant]
     Active Substance: AZITHROMYCIN DIHYDRATE
     Indication: PRODUCT USED FOR UNKNOWN INDICATION
     Dosage: UNK, EVERY OTHER DAY
     Route: 065
  3. NEBCIN [Suspect]
     Active Substance: TOBRAMYCIN SULFATE
     Indication: LUNG INFECTION
     Dosage: 250 MG IN SLOW PERFUSION / 24H
     Route: 042
     Dates: start: 20140619, end: 20140622
  4. CEFTAZIDIME PANPHARMA [Suspect]
     Active Substance: CEFTAZIDIME
     Indication: LUNG INFECTION
     Dosage: 6 G, UNK
     Route: 042
     Dates: start: 20140619, end: 20140626
  5. CORTANCYL [Concomitant]
     Active Substance: PREDNISONE
     Indication: PRODUCT USED FOR UNKNOWN INDICATION
     Dosage: 12.5 MG, DAILY
  6. METFORMIN [Concomitant]
     Active Substance: METFORMIN HYDROCHLORIDE
     Indication: PRODUCT USED FOR UNKNOWN INDICATION
     Dosage: 2 DF, DAILY
     Route: 065
  7. CIPROFLOXACIN ARROW FILM-COATED TABLET [Suspect]
     Active Substance: CIPROFLOXACIN
     Indication: LUNG INFECTION
     Dosage: 1500 MG, DAILY
     Route: 048
     Dates: start: 20140622, end: 20140626
  8. FENOFIBRATE. [Concomitant]
     Active Substance: FENOFIBRATE
     Indication: PRODUCT USED FOR UNKNOWN INDICATION
     Dosage: 200 MG, UNK
     Route: 065

REACTIONS (6)
  - Diarrhoea [Recovering/Resolving]
  - Erythema [Recovered/Resolved]
  - Purpura [Recovered/Resolved]
  - Skin lesion [Recovering/Resolving]
  - Pruritus [Recovered/Resolved]
  - Tinnitus [Recovered/Resolved]

NARRATIVE: CASE EVENT DATE: 20140623
